FAERS Safety Report 6991650-7 (Version None)
Quarter: 2010Q3

REPORT INFORMATION
  Report Type: 
  Country: None (occurrence: None)
  Receive Date: 20100917
  Receipt Date: 20100908
  Transmission Date: 20110219
  Serious: Yes (Life-Threatening, Hospitalization)
  Sender: FDA-Public Use
  Company Number: GR-TEVA-245020USA

PATIENT
  Age: 65 Year
  Sex: Female

DRUGS (3)
  1. PIMOZIDE TABLETS [Suspect]
     Indication: PSYCHOTIC DISORDER
  2. CHLORPROMAZINE [Suspect]
     Indication: PSYCHOTIC DISORDER
  3. TRIHEXYPHENIDYL HCL [Suspect]
     Indication: PSYCHOTIC DISORDER

REACTIONS (2)
  - DISSEMINATED INTRAVASCULAR COAGULATION [None]
  - NEUROLEPTIC MALIGNANT SYNDROME [None]
